FAERS Safety Report 7689539-3 (Version None)
Quarter: 2011Q3

REPORT INFORMATION
  Report Type: 
  Country: None (occurrence: None)
  Receive Date: 20110817
  Receipt Date: 20110811
  Transmission Date: 20111222
  Serious: Yes (Hospitalization)
  Sender: FDA-Public Use
  Company Number: PT-ABBOTT-11P-130-0846351-00

PATIENT
  Age: 68 Year
  Sex: Male

DRUGS (6)
  1. PREDNISOLONE [Suspect]
  2. PREDNISOLONE [Suspect]
     Indication: IMMUNOSUPPRESSION
  3. MYCOPHENOLATE MOFETIL [Suspect]
     Indication: IMMUNOSUPPRESSION
  4. CYCLOSPORINE [Suspect]
  5. CYCLOSPORINE [Suspect]
     Indication: IMMUNOSUPPRESSION
  6. DACLIZUMAB [Suspect]
     Indication: IMMUNOSUPPRESSION

REACTIONS (1)
  - DISSEMINATED CRYPTOCOCCOSIS [None]
